FAERS Safety Report 7731372-8 (Version None)
Quarter: 2011Q3

REPORT INFORMATION
  Report Type: 
  Country: None (occurrence: None)
  Receive Date: 20110906
  Receipt Date: 20110831
  Transmission Date: 20111222
  Serious: Yes (Other)
  Sender: FDA-Public Use
  Company Number: GR-PFIZER INC-2011202535

PATIENT
  Age: 75 Year
  Sex: Female
  Weight: 78 kg

DRUGS (1)
  1. LYRICA [Suspect]
     Indication: SPINAL COLUMN STENOSIS
     Dosage: 75MG DAILY
     Route: 048
     Dates: start: 20110115, end: 20110119

REACTIONS (8)
  - DYSARTHRIA [None]
  - TREMOR [None]
  - FACIAL PARESIS [None]
  - DRY MOUTH [None]
  - SWOLLEN TONGUE [None]
  - EYE DISORDER [None]
  - VISION BLURRED [None]
  - FATIGUE [None]
